FAERS Safety Report 16767309 (Version 1)
Quarter: 2019Q3

REPORT INFORMATION
  Report Type: Spontaneous
  Country: TR (occurrence: TR)
  Receive Date: 20190903
  Receipt Date: 20190903
  Transmission Date: 20191005
  Serious: Yes (Other)
  Sender: FDA-Public Use
  Company Number: TR-MYLANLABS-2019M1081696

PATIENT
  Age: 31 Year
  Sex: Male
  Weight: 60 kg

DRUGS (2)
  1. ALLERGODIL [Suspect]
     Active Substance: AZELASTINE
     Indication: HYPERSENSITIVITY
  2. ALLERGODIL [Suspect]
     Active Substance: AZELASTINE
     Indication: NASAL OBSTRUCTION
     Dosage: 1;1
     Route: 045

REACTIONS (4)
  - Cough [Not Recovered/Not Resolved]
  - Dyspnoea [Not Recovered/Not Resolved]
  - Feeling hot [Not Recovered/Not Resolved]
  - Sputum retention [Not Recovered/Not Resolved]

NARRATIVE: CASE EVENT DATE: 20190804
